FAERS Safety Report 22122777 (Version 2)
Quarter: 2023Q1

REPORT INFORMATION
  Report Type: Spontaneous
  Country: US (occurrence: US)
  Receive Date: 20230321
  Receipt Date: 20230329
  Transmission Date: 20230417
  Serious: No
  Sender: FDA-Public Use
  Company Number: US-JNJFOC-20230323722

PATIENT
  Sex: Female

DRUGS (1)
  1. TREMFYA [Suspect]
     Active Substance: GUSELKUMAB
     Indication: Product used for unknown indication
     Dosage: INJECT 1 PEN UNDER THE SKIN AT WEEK 0 THEN WEEK 4 THEN EVERY 8 WEEKS THEREAFTER.
     Route: 058

REACTIONS (2)
  - Product quality issue [Unknown]
  - Product dose omission issue [Unknown]
